FAERS Safety Report 9626989 (Version 1)
Quarter: 2013Q4

REPORT INFORMATION
  Report Type: Spontaneous
  Country: US (occurrence: None)
  Receive Date: 20131011
  Receipt Date: 20131011
  Transmission Date: 20140711
  Serious: Yes (Hospitalization)
  Sender: FDA-Public Use
  Company Number: AUR-APL-2013-08223

PATIENT
  Age: 54 Year
  Sex: Female

DRUGS (4)
  1. TOPIRAMATE [Suspect]
     Indication: MIGRAINE
  2. FLUNARIZINE [Suspect]
     Indication: MIGRAINE
     Route: 048
  3. VALPROATE (VALPROATE SODIUM) [Concomitant]
  4. ESCITALOPRAM (ESCITALOPRAM) [Concomitant]

REACTIONS (6)
  - Depression [None]
  - Disease recurrence [None]
  - Weight decreased [None]
  - Suicidal ideation [None]
  - Therapy cessation [None]
  - Migraine [None]
